FAERS Safety Report 5662025-8 (Version None)
Quarter: 2008Q1

REPORT INFORMATION
  Report Type: 
  Country: None (occurrence: None)
  Receive Date: 20080208
  Receipt Date: 20070920
  Transmission Date: 20080703
  Serious: Yes (Other)
  Sender: FDA-Public Use
  Company Number: URSO-2007-184

PATIENT
  Age: 62 Year
  Sex: Female

DRUGS (6)
  1. URSO FORTE [Suspect]
     Dosage: 500 MG QD PER ORAL
     Route: 048
  2. SYNTHROID [Concomitant]
  3. BENADRYL [Concomitant]
  4. VITAMINS [Concomitant]
  5. LACTAID [Concomitant]
  6. PANCREASE MT 4 AND MT 20 [Concomitant]

REACTIONS (4)
  - ABDOMINAL PAIN UPPER [None]
  - DIARRHOEA [None]
  - NAUSEA [None]
  - WEIGHT DECREASED [None]
